FAERS Safety Report 5496180-X (Version None)
Quarter: 2007Q4

REPORT INFORMATION
  Report Type: 
  Country: None (occurrence: None)
  Receive Date: 20071023
  Receipt Date: 20071023
  Transmission Date: 20080405
  Serious: Yes (Hospitalization)
  Sender: FDA-Public Use
  Company Number: None

PATIENT
  Sex: Female
  Weight: 61.8 kg

DRUGS (4)
  1. CYCLOPHOSPHAMIDE [Suspect]
     Dosage: 960 MG
  2. PENTOSTATIN [Concomitant]
     Dosage: 6.4 MG
  3. RITUXIMAB (MOAB C2B8 ANTI CD20, CHIMERIC) [Suspect]
     Dosage: 600 MG
  4. NEULASTA [Concomitant]

REACTIONS (7)
  - DIARRHOEA [None]
  - HYPONATRAEMIA [None]
  - MYALGIA [None]
  - NAUSEA [None]
  - RENAL INJURY [None]
  - URINARY TRACT INFECTION ENTEROCOCCAL [None]
  - VOMITING [None]
